FAERS Safety Report 9446059 (Version 1)
Quarter: 2013Q3

REPORT INFORMATION
  Report Type: Spontaneous
  Country: US (occurrence: US)
  Receive Date: 20130807
  Receipt Date: 20130807
  Transmission Date: 20140515
  Serious: No
  Sender: FDA-Public Use
  Company Number: US-AMGEN-USASP2013047216

PATIENT
  Age: 68 Year
  Sex: Female

DRUGS (7)
  1. ENBREL [Suspect]
     Indication: RHEUMATOID ARTHRITIS
     Dosage: UNK MG, QWK
     Route: 065
     Dates: start: 20021201, end: 2007
  2. ORENCIA [Suspect]
     Dosage: UNK
  3. ACTEMRA [Suspect]
     Dosage: UNK
  4. KINERET [Concomitant]
     Dosage: UNK
  5. RITUXAN [Concomitant]
     Dosage: UNK
  6. HUMIRA [Concomitant]
     Dosage: UNK
  7. CIMZIA [Concomitant]
     Dosage: UNK

REACTIONS (10)
  - Therapeutic response decreased [Not Recovered/Not Resolved]
  - Stomatitis [Not Recovered/Not Resolved]
  - White blood cell count increased [Recovered/Resolved]
  - Swelling face [Recovered/Resolved]
  - Local swelling [Recovered/Resolved]
  - Pruritus generalised [Recovered/Resolved]
  - Infusion site pain [Recovered/Resolved]
  - Infusion site pruritus [Recovered/Resolved]
  - Infusion site erythema [Recovered/Resolved]
  - Infusion site reaction [Recovered/Resolved]
